FAERS Safety Report 20719483 (Version 1)
Quarter: 2022Q2

REPORT INFORMATION
  Report Type: Spontaneous
  Country: US (occurrence: None)
  Receive Date: 20220418
  Receipt Date: 20220418
  Transmission Date: 20220721
  Serious: Yes (Hospitalization)
  Sender: FDA-Public Use
  Company Number: None

PATIENT
  Sex: Male

DRUGS (2)
  1. HUMIRA [Suspect]
     Active Substance: ADALIMUMAB
     Indication: Rheumatoid arthritis
     Dosage: OTHER QUANTITY : 40MG/0.8ML;?OTHER FREQUENCY : TWICE MONTHLY ;?
     Route: 058
     Dates: start: 20171107
  2. HYDROXYUREA [Concomitant]

REACTIONS (1)
  - Leukaemia [None]
